FAERS Safety Report 21875086 (Version 2)
Quarter: 2023Q1

REPORT INFORMATION
  Report Type: Spontaneous
  Country: ES (occurrence: ES)
  Receive Date: 20230117
  Receipt Date: 20230222
  Transmission Date: 20230417
  Serious: Yes (Hospitalization, Other)
  Sender: FDA-Public Use
  Company Number: ES-JNJFOC-20230130383

PATIENT
  Age: 55 Year
  Sex: Male

DRUGS (3)
  1. ERLEADA [Suspect]
     Active Substance: APALUTAMIDE
     Indication: Hormone-dependent prostate cancer
     Dosage: 4 TABLETS/24H
     Route: 048
     Dates: start: 20220910, end: 20221124
  2. ERLEADA [Suspect]
     Active Substance: APALUTAMIDE
     Dosage: 4 TABLETS/24H
     Route: 048
     Dates: start: 20221212, end: 20230110
  3. GONADORELIN [Concomitant]
     Active Substance: GONADORELIN
     Indication: Product used for unknown indication
     Dosage: SEMI ANNUAL
     Route: 030
     Dates: start: 202207

REACTIONS (2)
  - Interstitial lung disease [Recovering/Resolving]
  - Skin toxicity [Recovered/Resolved]

NARRATIVE: CASE EVENT DATE: 20221124
